FAERS Safety Report 6491939-4 (Version None)
Quarter: 2009Q4

REPORT INFORMATION
  Report Type: 
  Country: None (occurrence: None)
  Receive Date: 20091125
  Receipt Date: 20090902
  Transmission Date: 20100525
  Serious: Yes (Other)
  Sender: FDA-Public Use
  Company Number: 2009BH013525

PATIENT
  Age: 53 Year
  Sex: Male
  Weight: 118 kg

DRUGS (23)
  1. DIANEAL [Suspect]
     Indication: PERITONEAL DIALYSIS
     Dosage: 12.5 L ; 5X A DAY ; IP
     Route: 033
     Dates: start: 20090501
  2. DIANEAL [Suspect]
     Indication: PERITONEAL DIALYSIS
     Dosage: 2.5 L ; EVERY DAY ; IP
     Route: 033
     Dates: start: 20090501
  3. HEPARIN [Concomitant]
  4. ABILIFY [Concomitant]
  5. ALLOPURINOL [Concomitant]
  6. AMLODIPINE [Concomitant]
  7. ASPIRIN [Concomitant]
  8. CALCIUM WITH VITAMIN D [Concomitant]
  9. DULCOLAX [Concomitant]
  10. EPOGEN [Concomitant]
  11. HECTOROL [Concomitant]
  12. HUMALOG [Concomitant]
  13. LABETALOL HCL [Concomitant]
  14. LANTUS [Concomitant]
  15. LEXAPRO [Concomitant]
  16. LISINOPRIL [Concomitant]
  17. MIRTAZAPINE [Concomitant]
  18. OMEPRAZOLE [Concomitant]
  19. PHOSLO [Concomitant]
  20. RENAL CAPS NONE CAPSULE [Concomitant]
  21. RESTORIL [Concomitant]
  22. SIMVASTATIN [Concomitant]
  23. TERAZOSIN HCL [Concomitant]

REACTIONS (2)
  - PERITONEAL DIALYSIS COMPLICATION [None]
  - PERITONITIS [None]
